FAERS Safety Report 9174207 (Version 1)
Quarter: 2013Q1

REPORT INFORMATION
  Report Type: Spontaneous
  Country: US (occurrence: None)
  Receive Date: 20130320
  Receipt Date: 20130320
  Transmission Date: 20140127
  Serious: No
  Sender: FDA-Public Use
  Company Number: None

PATIENT
  Age: 64 Year
  Sex: Female
  Weight: 66.23 kg

DRUGS (1)
  1. METHYLPREDNISOLONE ACETATE [Suspect]
     Indication: LUMBAR SPINAL STENOSIS
     Dosage: 80MG PRN EPIDURAL
     Route: 008
     Dates: start: 20120918, end: 20120918

REACTIONS (4)
  - Product contamination [None]
  - Headache [None]
  - Musculoskeletal stiffness [None]
  - Local swelling [None]
